FAERS Safety Report 17833274 (Version 1)
Quarter: 2020Q2

REPORT INFORMATION
  Report Type: Report from Study
  Country: JP (occurrence: JP)
  Receive Date: 20200528
  Receipt Date: 20200528
  Transmission Date: 20200714
  Serious: Yes (Other)
  Sender: FDA-Public Use
  Company Number: JP-AUROBINDO-AUR-APL-2020-025679

PATIENT
  Age: 74 Year
  Sex: Male
  Weight: 50.9 kg

DRUGS (16)
  1. PRALATREXATE INJECTION [Suspect]
     Active Substance: PRALATREXATE
     Dosage: 30 MILLIGRAM/SQ. METER
     Route: 042
     Dates: start: 20190809
  2. PRALATREXATE INJECTION [Suspect]
     Active Substance: PRALATREXATE
     Dosage: 30 MILLIGRAM/SQ. METER
     Route: 065
     Dates: start: 20190920
  3. PRALATREXATE INJECTION [Suspect]
     Active Substance: PRALATREXATE
     Indication: ANGIOIMMUNOBLASTIC T-CELL LYMPHOMA STAGE II
     Dosage: 30 MILLIGRAM/SQ. METER
     Route: 042
     Dates: start: 20190719, end: 20190925
  4. PRALATREXATE INJECTION [Suspect]
     Active Substance: PRALATREXATE
     Dosage: 30 MILLIGRAM/SQ. METER
     Route: 065
     Dates: start: 20190830
  5. FOLIC ACID. [Concomitant]
     Active Substance: FOLIC ACID
     Indication: PROPHYLAXIS
     Dosage: UNK
     Route: 048
     Dates: start: 20190705, end: 20191031
  6. VITAMIN B12 [Concomitant]
     Active Substance: CYANOCOBALAMIN
     Indication: PROPHYLAXIS
     Dosage: UNK
     Route: 030
     Dates: start: 20190705, end: 20190913
  7. PRALATREXATE INJECTION [Suspect]
     Active Substance: PRALATREXATE
     Dosage: 30 MILLIGRAM/SQ. METER
     Route: 065
     Dates: start: 20190816
  8. PRALATREXATE INJECTION [Suspect]
     Active Substance: PRALATREXATE
     Dosage: 30 MILLIGRAM/SQ. METER
     Route: 042
     Dates: start: 20190913
  9. ALLOID G [Concomitant]
     Active Substance: SODIUM ALGINATE
     Indication: ANGIOIMMUNOBLASTIC T-CELL LYMPHOMA STAGE II
     Dosage: UNK
     Route: 065
  10. FLUCONAZOLE. [Concomitant]
     Active Substance: FLUCONAZOLE
     Indication: ANGIOIMMUNOBLASTIC T-CELL LYMPHOMA STAGE II
     Dosage: UNK
     Route: 065
     Dates: start: 20190726
  11. HACHIAZULE [Concomitant]
     Indication: ANGIOIMMUNOBLASTIC T-CELL LYMPHOMA STAGE II
     Dosage: UNK
     Route: 065
     Dates: start: 20190726
  12. PRALATREXATE INJECTION [Suspect]
     Active Substance: PRALATREXATE
     Dosage: 30 MILLIGRAM/SQ. METER
     Route: 065
     Dates: start: 20190823
  13. HALIZON [Concomitant]
     Active Substance: AMPHOTERICIN B
     Indication: ANGIOIMMUNOBLASTIC T-CELL LYMPHOMA STAGE II
     Dosage: UNK
     Route: 048
     Dates: start: 20190719
  14. OPSO [Concomitant]
     Active Substance: MORPHINE HYDROCHLORIDE
     Indication: PRODUCT USED FOR UNKNOWN INDICATION
     Dosage: UNK
     Route: 065
  15. PRALATREXATE INJECTION [Suspect]
     Active Substance: PRALATREXATE
     Dosage: 30 MILLIGRAM/SQ. METER
     Route: 065
     Dates: start: 20190726
  16. CALONAL [Concomitant]
     Active Substance: ACETAMINOPHEN
     Indication: ANGIOIMMUNOBLASTIC T-CELL LYMPHOMA STAGE II
     Dosage: UNK
     Route: 065
     Dates: start: 20190729

REACTIONS (4)
  - Platelet count decreased [Recovered/Resolved]
  - Anaemia [Recovered/Resolved]
  - Therapeutic response decreased [Unknown]
  - Stomatitis [Recovering/Resolving]

NARRATIVE: CASE EVENT DATE: 20190726
